FAERS Safety Report 7362182-1 (Version None)
Quarter: 2011Q1

REPORT INFORMATION
  Report Type: 
  Country: None (occurrence: None)
  Receive Date: 20110315
  Receipt Date: 20110315
  Transmission Date: 20110831
  Serious: Yes (Hospitalization)
  Sender: FDA-Public Use
  Company Number: None

PATIENT
  Age: 84 Year
  Sex: Male

DRUGS (11)
  1. PROSCAR [Concomitant]
  2. REGLAN [Concomitant]
  3. FLONAS [Concomitant]
  4. LISINOPRIL [Concomitant]
  5. PAXIL [Concomitant]
  6. ACETAMINOPHEN [Concomitant]
  7. PHENYTOIN [Suspect]
     Indication: CONVULSION
     Dosage: 500MG DAILY PO
     Route: 048
  8. PHENERGAN HCL [Concomitant]
  9. VENTOLIN [Concomitant]
  10. DITROPAN [Concomitant]
  11. LACTULOSE [Concomitant]

REACTIONS (4)
  - DECREASED APPETITE [None]
  - FALL [None]
  - LACERATION [None]
  - ATAXIA [None]
